FAERS Safety Report 5285856-5 (Version None)
Quarter: 2007Q1

REPORT INFORMATION
  Report Type: 
  Country: None (occurrence: None)
  Receive Date: 20070329
  Receipt Date: 20070322
  Transmission Date: 20070707
  Serious: Yes (Hospitalization)
  Sender: FDA-Public Use
  Company Number: 163-20785-07031289

PATIENT
  Age: 92 Year
  Sex: Female

DRUGS (1)
  1. THALOMID [Suspect]
     Indication: MULTIPLE MYELOMA
     Dosage: 50 MG, 1 IN 1 D, ORAL
     Route: 048
     Dates: start: 20070307

REACTIONS (4)
  - DYSPNOEA [None]
  - HYPOAESTHESIA [None]
  - MUSCLE SPASMS [None]
  - SENSATION OF HEAVINESS [None]
